FAERS Safety Report 6015398-0 (Version None)
Quarter: 2008Q4

REPORT INFORMATION
  Report Type: 
  Country: None (occurrence: None)
  Receive Date: 20081222
  Receipt Date: 20081209
  Transmission Date: 20090506
  Serious: Yes (Hospitalization)
  Sender: FDA-Public Use
  Company Number: US-BIOGENIDEC-2008BI009471

PATIENT
  Age: 43 Year
  Sex: Female

DRUGS (10)
  1. TYSABRI [Suspect]
     Indication: MULTIPLE SCLEROSIS
     Route: 042
     Dates: start: 20061030, end: 20080407
  2. FLUOXETINE HYDROCHLORIDE [Concomitant]
     Indication: DRUG USE FOR UNKNOWN INDICATION
  3. GABITRIL [Concomitant]
     Indication: DRUG USE FOR UNKNOWN INDICATION
  4. PROVIGIL [Concomitant]
     Indication: DRUG USE FOR UNKNOWN INDICATION
  5. LYRICA [Concomitant]
     Indication: DRUG USE FOR UNKNOWN INDICATION
  6. ROZEREM [Concomitant]
     Indication: DRUG USE FOR UNKNOWN INDICATION
  7. BONIVA [Concomitant]
     Indication: DRUG USE FOR UNKNOWN INDICATION
  8. DURAGESIC-100 [Concomitant]
     Indication: DRUG USE FOR UNKNOWN INDICATION
  9. MORPHINE SULFATE [Concomitant]
  10. DIAZEPAM [Concomitant]
     Indication: DRUG USE FOR UNKNOWN INDICATION

REACTIONS (3)
  - BREAST CANCER STAGE I [None]
  - HYPOTENSION [None]
  - WHITE BLOOD CELL COUNT DECREASED [None]
